FAERS Safety Report 5278139-0 (Version None)
Quarter: 2007Q1

REPORT INFORMATION
  Report Type: 
  Country: None (occurrence: None)
  Receive Date: 20061213
  Receipt Date: 20041021
  Transmission Date: 20070707
  Serious: No
  Sender: FDA-Public Use
  Company Number: 2004UW18476

PATIENT
  Age: 49 Year
  Sex: Female

DRUGS (12)
  1. SEROQUEL [Suspect]
     Indication: BIPOLAR DISORDER
     Dosage: 300 MG HS PO
     Route: 048
     Dates: start: 20040312, end: 20040324
  2. SEROQUEL [Suspect]
     Indication: BIPOLAR DISORDER
     Dosage: 600 MG PO
     Route: 048
     Dates: start: 20040325, end: 20040512
  3. SEROQUEL [Suspect]
     Indication: BIPOLAR DISORDER
     Dosage: 100 MG HS PO
     Route: 048
     Dates: start: 20040908, end: 20040914
  4. SEROQUEL [Suspect]
     Indication: BIPOLAR DISORDER
     Dosage: 200 MG HS PO
     Route: 048
     Dates: start: 20040915, end: 20040923
  5. SEROQUEL [Suspect]
     Indication: BIPOLAR DISORDER
     Dosage: 300 MG HS PO
     Route: 048
     Dates: start: 20040924
  6. LIPITOR [Concomitant]
  7. GLUCOTROL [Concomitant]
  8. LAMICTAL [Concomitant]
  9. AGILAN [Concomitant]
  10. LEXAPRO [Concomitant]
  11. CLONAZEPAM [Concomitant]
  12. VALIUM [Concomitant]

REACTIONS (1)
  - LIVER FUNCTION TEST ABNORMAL [None]
